FAERS Safety Report 5757087-3 (Version None)
Quarter: 2008Q2

REPORT INFORMATION
  Report Type: 
  Country: None (occurrence: None)
  Receive Date: 20080603
  Receipt Date: 20080527
  Transmission Date: 20081010
  Serious: Yes (Hospitalization)
  Sender: FDA-Public Use
  Company Number: B0522749A

PATIENT
  Age: 20 Year
  Sex: Male

DRUGS (7)
  1. AMOXICILLIN [Suspect]
     Indication: DRUG USE FOR UNKNOWN INDICATION
     Route: 065
     Dates: start: 20080211
  2. TOPREC [Suspect]
     Indication: TOOTHACHE
     Dosage: 1TAB FOUR TIMES PER DAY
     Route: 048
     Dates: start: 20080205, end: 20080211
  3. NIMESULIDE [Concomitant]
     Indication: DRUG USE FOR UNKNOWN INDICATION
     Route: 065
     Dates: start: 20080211
  4. DOLIPRANE [Concomitant]
     Indication: DRUG USE FOR UNKNOWN INDICATION
     Route: 065
     Dates: start: 20080211
  5. TOPLEXIL [Concomitant]
     Indication: DRUG USE FOR UNKNOWN INDICATION
     Route: 065
     Dates: start: 20080211
  6. DERINOX [Concomitant]
     Indication: DRUG USE FOR UNKNOWN INDICATION
     Route: 065
     Dates: start: 20080211
  7. MOUTHWASH (UNSPECIFIED) [Concomitant]
     Indication: TOOTHACHE
     Route: 048
     Dates: start: 20080205

REACTIONS (24)
  - CONJUNCTIVITIS [None]
  - DERMATITIS BULLOUS [None]
  - ENANTHEMA [None]
  - FOLLICULITIS [None]
  - GENITAL EROSION [None]
  - GINGIVAL DISORDER [None]
  - LIP DRY [None]
  - LIP EROSION [None]
  - MOUTH ULCERATION [None]
  - MUCOSAL EROSION [None]
  - NIKOLSKY'S SIGN [None]
  - ODYNOPHAGIA [None]
  - ONYCHOMADESIS [None]
  - PENILE ULCERATION [None]
  - PRURITUS [None]
  - PYREXIA [None]
  - RASH [None]
  - RASH MACULAR [None]
  - SKIN DISORDER [None]
  - SKIN HYPERPIGMENTATION [None]
  - SKIN HYPOPIGMENTATION [None]
  - SKIN LESION [None]
  - TONGUE EXFOLIATION [None]
  - TOXIC EPIDERMAL NECROLYSIS [None]
